FAERS Safety Report 7440294-1 (Version None)
Quarter: 2011Q2

REPORT INFORMATION
  Report Type: 
  Country: None (occurrence: None)
  Receive Date: 20110427
  Receipt Date: 20110418
  Transmission Date: 20111010
  Serious: Yes (Death)
  Sender: FDA-Public Use
  Company Number: GXKR2010GB10535

PATIENT
  Age: 49 Year
  Sex: Male
  Weight: 79 kg

DRUGS (3)
  1. QUETIAPINE [Concomitant]
  2. ORPHENADRINE CITRATE [Concomitant]
  3. CLOZAPINE [Suspect]
     Dosage: 200 MG/DAY
     Route: 065

REACTIONS (4)
  - GASTROINTESTINAL HYPOMOTILITY [None]
  - ACUTE HEPATIC FAILURE [None]
  - LIVER INJURY [None]
  - INTESTINAL DILATATION [None]
